FAERS Safety Report 5857437-3 (Version None)
Quarter: 2008Q3

REPORT INFORMATION
  Report Type: 
  Country: None (occurrence: None)
  Receive Date: 20080825
  Receipt Date: 20080825
  Transmission Date: 20090109
  Serious: Yes (Other)
  Sender: FDA-Public Use
  Company Number: None

PATIENT
  Sex: Female
  Weight: 42.7 kg

DRUGS (1)
  1. ONCASPAR [Suspect]
     Indication: ACUTE LYMPHOCYTIC LEUKAEMIA
     Dosage: 3300 UNITS EVERY 1 TO 2 MONTH IM
     Route: 030
     Dates: start: 20071030, end: 20080708

REACTIONS (1)
  - ANAPHYLACTIC REACTION [None]
